FAERS Safety Report 11742576 (Version 3)
Quarter: 2016Q1

REPORT INFORMATION
  Report Type: Spontaneous
  Country: US (occurrence: US)
  Receive Date: 20151116
  Receipt Date: 20160225
  Transmission Date: 20160525
  Serious: No
  Sender: FDA-Public Use
  Company Number: US-ACTELION PHARMACEUTICALS US, INC.-A-NJ2015-117705

PATIENT
  Age: 58 Year
  Sex: Male

DRUGS (3)
  1. SILDENAFIL. [Concomitant]
     Active Substance: SILDENAFIL
  2. TRACLEER [Suspect]
     Active Substance: BOSENTAN
     Indication: PULMONARY ARTERIAL HYPERTENSION
     Dosage: UNK
     Route: 048
  3. VELETRI [Suspect]
     Active Substance: EPOPROSTENOL
     Indication: PULMONARY ARTERIAL HYPERTENSION
     Dosage: 15 NG/KG, PER MIN
     Route: 042
     Dates: start: 2014

REACTIONS (7)
  - Device breakage [Unknown]
  - Diarrhoea [Unknown]
  - Feeling abnormal [Recovering/Resolving]
  - Pain in jaw [Unknown]
  - Device connection issue [Recovered/Resolved]
  - Headache [Unknown]
  - Device leakage [Unknown]

NARRATIVE: CASE EVENT DATE: 20150711
